FAERS Safety Report 22677614 (Version 4)
Quarter: 2024Q3

REPORT INFORMATION
  Report Type: Spontaneous
  Country: US (occurrence: US)
  Receive Date: 20230706
  Receipt Date: 20240802
  Transmission Date: 20241017
  Serious: Yes (Death, Life-Threatening, Hospitalization, Other)
  Sender: TAKEDA
  Company Number: US-TAKEDA-2023TUS065959

PATIENT
  Age: 35 Year
  Sex: Female

DRUGS (1)
  1. COLCHICINE [Suspect]
     Active Substance: COLCHICINE
     Indication: Abdominal pain
     Dosage: UNK
     Route: 065

REACTIONS (7)
  - Cardiac arrest [Fatal]
  - Hypoxia [Unknown]
  - Ventricular fibrillation [Unknown]
  - Metabolic acidosis [Unknown]
  - Diarrhoea [Unknown]
  - Overdose [Unknown]
  - Intentional product misuse [Unknown]
